FAERS Safety Report 5266718-6 (Version None)
Quarter: 2007Q1

REPORT INFORMATION
  Report Type: 
  Country: None (occurrence: None)
  Receive Date: 20070312
  Receipt Date: 20070228
  Transmission Date: 20070707
  Serious: Yes (Disabling)
  Sender: FDA-Public Use
  Company Number: 100#03#2007-00679

PATIENT
  Age: 70 Year
  Sex: Female

DRUGS (5)
  1. CITALOPRAM HYDROBROMIDE [Suspect]
     Indication: DEPRESSION
     Dosage: 20 MG
     Route: 048
     Dates: start: 20061208, end: 20061227
  2. ASPIRIN [Concomitant]
  3. CORACTEN XL (NIFEDIPINE) (NIFEDIPINE) [Concomitant]
  4. SALTUBAMOL (SALBUTAMOL) (SALBUTAMOL) [Concomitant]
  5. SOTALOL (SOTALOL) (SOTALOL) [Concomitant]

REACTIONS (4)
  - HALLUCINATION [None]
  - MEMORY IMPAIRMENT [None]
  - MUSCULOSKELETAL STIFFNESS [None]
  - RESTLESSNESS [None]
